FAERS Safety Report 13461384 (Version 2)
Quarter: 2017Q3

REPORT INFORMATION
  Report Type: Report from Study
  Country: None (occurrence: CA)
  Receive Date: 20170420
  Receipt Date: 20170720
  Transmission Date: 20171127
  Serious: Yes (Hospitalization)
  Sender: FDA-Public Use
  Company Number: CA-BIOVITRUM-2017CA0404

PATIENT
  Age: 10 Year
  Sex: Female

DRUGS (3)
  1. KINERET [Suspect]
     Active Substance: ANAKINRA
     Indication: STILL^S DISEASE
     Route: 058
     Dates: start: 20160603
  2. PREDNISOLONE. [Concomitant]
     Active Substance: PREDNISOLONE
  3. METHOTREXATE. [Concomitant]
     Active Substance: METHOTREXATE

REACTIONS (1)
  - Drug ineffective [Unknown]

NARRATIVE: CASE EVENT DATE: 201703
